FAERS Safety Report 7955058-X (Version None)
Quarter: 2011Q4

REPORT INFORMATION
  Report Type: 
  Country: None (occurrence: None)
  Receive Date: 20111202
  Receipt Date: 20111121
  Transmission Date: 20120403
  Serious: Yes (Hospitalization)
  Sender: FDA-Public Use
  Company Number: NL-MEDIMMUNE-MEDI-0014010

PATIENT
  Sex: Male
  Weight: 3.2 kg

DRUGS (1)
  1. SYNAGIS [Suspect]
     Indication: BRONCHOPULMONARY DYSPLASIA
     Route: 030
     Dates: start: 20111027, end: 20111027

REACTIONS (3)
  - ILL-DEFINED DISORDER [None]
  - FLUID INTAKE REDUCED [None]
  - TENSION [None]
